FAERS Safety Report 19594962 (Version 3)
Quarter: 2021Q3

REPORT INFORMATION
  Report Type: Report from Study
  Country: None (occurrence: US)
  Receive Date: 20210723
  Receipt Date: 20210802
  Transmission Date: 20211014
  Serious: Yes (Hospitalization)
  Sender: FDA-Public Use
  Company Number: US-ABBVIE-21K-163-4000284-00

PATIENT
  Sex: Male
  Weight: 111.68 kg

DRUGS (5)
  1. HUMIRA [Suspect]
     Active Substance: ADALIMUMAB
     Route: 058
     Dates: start: 202107
  2. HUMIRA [Suspect]
     Active Substance: ADALIMUMAB
     Indication: HIDRADENITIS
     Dosage: DAY 1
     Route: 058
     Dates: start: 2021, end: 2021
  3. LISINOPRIL. [Concomitant]
     Active Substance: LISINOPRIL
     Indication: HYPERTENSION
  4. HUMIRA [Suspect]
     Active Substance: ADALIMUMAB
     Dosage: DAY 15
     Route: 058
     Dates: start: 20210508, end: 2021
  5. HUMIRA [Suspect]
     Active Substance: ADALIMUMAB
     Route: 058
     Dates: start: 20210521, end: 202107

REACTIONS (4)
  - Skin disorder [Not Recovered/Not Resolved]
  - Drug ineffective [Unknown]
  - Hidradenitis [Unknown]
  - Scrotal mass [Unknown]

NARRATIVE: CASE EVENT DATE: 2021
